FAERS Safety Report 6087593-6 (Version None)
Quarter: 2009Q1

REPORT INFORMATION
  Report Type: 
  Country: None (occurrence: None)
  Receive Date: 20090223
  Receipt Date: 20090216
  Transmission Date: 20090719
  Serious: Yes (Hospitalization, Other)
  Sender: FDA-Public Use
  Company Number: JP-JNJFOC-20081206500

PATIENT
  Sex: Male

DRUGS (8)
  1. CRAVIT [Suspect]
     Indication: PLEURISY
     Route: 048
  2. CRAVIT [Suspect]
     Indication: PNEUMONIA
     Route: 048
  3. VITAMEDIN [Suspect]
     Indication: HYPOVITAMINOSIS
     Route: 048
  4. BERIZYM [Suspect]
     Indication: DYSPEPSIA
     Route: 048
  5. FOIPAN [Suspect]
     Indication: REFLUX OESOPHAGITIS
     Route: 048
  6. NORVASC [Suspect]
     Indication: HYPERTENSION
     Route: 048
  7. PL [Suspect]
     Indication: NASOPHARYNGITIS
     Route: 048
  8. TANATRIL [Suspect]
     Indication: HYPERTENSION
     Route: 048

REACTIONS (1)
  - LUNG DISORDER [None]
